FAERS Safety Report 4277463-8 (Version None)
Quarter: 2004Q1

REPORT INFORMATION
  Report Type: 
  Country: None (occurrence: None)
  Receive Date: 20040122
  Receipt Date: 20040112
  Transmission Date: 20041129
  Serious: Yes (Other)
  Sender: FDA-Public Use
  Company Number: DE-ROCHE-355960

PATIENT
  Sex: Female

DRUGS (1)
  1. BONDRONAT [Suspect]
     Indication: STERNAL FRACTURE
     Route: 042

REACTIONS (2)
  - DEEP VEIN THROMBOSIS [None]
  - STERNAL FRACTURE [None]
